FAERS Safety Report 9733095 (Version 1)
Quarter: 2013Q4

REPORT INFORMATION
  Report Type: Spontaneous
  Country: US (occurrence: None)
  Receive Date: 20131204
  Receipt Date: 20131204
  Transmission Date: 20140711
  Serious: Yes (Other)
  Sender: FDA-Public Use
  Company Number: None

PATIENT
  Age: 75 Year
  Sex: Female
  Weight: 92.99 kg

DRUGS (2)
  1. AMLODIPINE BESYLATE [Suspect]
     Indication: HYPERTENSION
     Route: 048
     Dates: start: 20130801, end: 201310
  2. MICARDIS (TELMISARTAN) [Concomitant]

REACTIONS (6)
  - Back pain [None]
  - Pelvic pain [None]
  - Myalgia [None]
  - Local swelling [None]
  - Joint swelling [None]
  - Mobility decreased [None]
